FAERS Safety Report 5593305-2 (Version None)
Quarter: 2008Q1

REPORT INFORMATION
  Report Type: 
  Country: None (occurrence: None)
  Receive Date: 20080116
  Receipt Date: 20080107
  Transmission Date: 20080703
  Serious: Yes (Hospitalization)
  Sender: FDA-Public Use
  Company Number: B0495391C

PATIENT
  Age: 50 Year
  Sex: Female
  Weight: 49 kg

DRUGS (6)
  1. LAPATINIB [Suspect]
     Dosage: 1250MG PER DAY
     Route: 048
     Dates: start: 20070430
  2. CAPECITABINE [Suspect]
     Dosage: 1650MGM2 TWICE PER DAY
     Route: 048
     Dates: start: 20070430
  3. OXYCONTIN [Concomitant]
     Indication: BONE PAIN
     Dosage: 10MG TWICE PER DAY
     Route: 048
     Dates: start: 20070911
  4. DICILLIN [Concomitant]
     Indication: WOUND
     Dosage: 200MG PER DAY
     Route: 048
  5. CORODIL [Concomitant]
     Indication: HYPERTENSION
     Route: 048
  6. PANTOLOC [Concomitant]
     Indication: PROPHYLAXIS
     Dosage: 40MG PER DAY
     Route: 048

REACTIONS (4)
  - FATIGUE [None]
  - HAEMOGLOBIN DECREASED [None]
  - MALAISE [None]
  - MENTAL IMPAIRMENT [None]
